FAERS Safety Report 13101742 (Version 2)
Quarter: 2017Q1

REPORT INFORMATION
  Report Type: Spontaneous
  Country: US (occurrence: US)
  Receive Date: 20170110
  Receipt Date: 20170328
  Transmission Date: 20170428
  Serious: No
  Sender: FDA-Public Use
  Company Number: US-PFIZER INC-2017006363

PATIENT
  Sex: Female

DRUGS (2)
  1. CYCLOBENZAPRINE [Concomitant]
     Active Substance: CYCLOBENZAPRINE
     Dosage: UNK
  2. LYRICA [Suspect]
     Active Substance: PREGABALIN
     Indication: NERVE INJURY
     Dosage: UNK

REACTIONS (12)
  - Drug screen negative [Unknown]
  - Dyspnoea [Unknown]
  - Emotional disorder [Unknown]
  - Dry mouth [Unknown]
  - Musculoskeletal pain [Unknown]
  - Breast pain [Unknown]
  - Heart rate increased [Unknown]
  - Depression [Unknown]
  - Drug dose omission [Unknown]
  - Stress [Unknown]
  - Panic reaction [Unknown]
  - Blood prolactin increased [Unknown]

NARRATIVE: CASE EVENT DATE: 2016
